FAERS Safety Report 8117470-8 (Version None)
Quarter: 2012Q1

REPORT INFORMATION
  Report Type: 
  Country: None (occurrence: None)
  Receive Date: 20120207
  Receipt Date: 20120130
  Transmission Date: 20120608
  Serious: Yes (Hospitalization)
  Sender: FDA-Public Use
  Company Number: US-BIOGENIDEC-2012BI002449

PATIENT
  Age: 59 Year
  Sex: Female

DRUGS (2)
  1. TYSABRI [Suspect]
     Indication: MULTIPLE SCLEROSIS
     Route: 042
     Dates: start: 20110224, end: 20111215
  2. TIZANIDINE HCL [Concomitant]

REACTIONS (3)
  - URINARY TRACT INFECTION [None]
  - CERVICAL CORD COMPRESSION [None]
  - INTERVERTEBRAL DISC DISORDER [None]
